FAERS Safety Report 6164474-0 (Version None)
Quarter: 2009Q2

REPORT INFORMATION
  Report Type: 
  Country: None (occurrence: None)
  Receive Date: 20090421
  Receipt Date: 20090410
  Transmission Date: 20091009
  Serious: No
  Sender: FDA-Public Use
  Company Number: 20096564

PATIENT
  Sex: Female

DRUGS (1)
  1. LIORESAL [Suspect]
     Indication: MUSCLE SPASTICITY
     Dosage: MCG, DAILY, INTRATHECAL
     Route: 037

REACTIONS (6)
  - FATIGUE [None]
  - LOCAL SWELLING [None]
  - MALAISE [None]
  - MEDICAL DEVICE SITE REACTION [None]
  - PAIN [None]
  - THERAPEUTIC RESPONSE DECREASED [None]
